FAERS Safety Report 5122518-9 (Version None)
Quarter: 2006Q4

REPORT INFORMATION
  Report Type: 
  Country: None (occurrence: None)
  Receive Date: 20061009
  Receipt Date: 20060714
  Transmission Date: 20070319
  Serious: Yes (Hospitalization)
  Sender: FDA-Public Use
  Company Number: PHBS2006JP10660

PATIENT
  Age: 73 Year
  Sex: Male
  Weight: 60 kg

DRUGS (7)
  1. LAMISIL [Suspect]
     Indication: NAIL TINEA
     Dosage: 125 MG, QD
     Route: 048
     Dates: start: 20060524, end: 20060704
  2. LAMISIL [Suspect]
     Route: 048
  3. CYANOCOBALAMIN [Concomitant]
     Dates: start: 20050517
  4. ASPIRIN [Concomitant]
     Indication: CORONARY ARTERY STENOSIS
     Dosage: 100 MG/DAY
     Route: 048
     Dates: start: 20050328
  5. PURSENNID [Concomitant]
     Indication: CONSTIPATION
     Dosage: 36 MG/DAY
     Route: 048
     Dates: start: 20050328
  6. LASIX [Concomitant]
     Indication: RENAL FAILURE CHRONIC
     Dosage: 80 MG/DAY
     Route: 048
     Dates: start: 20050328
  7. TANKARU [Concomitant]
     Dosage: 1500 MG/D
     Route: 048
     Dates: start: 20050328

REACTIONS (4)
  - ANAEMIA [None]
  - HAEMATOCRIT DECREASED [None]
  - HAEMOGLOBIN DECREASED [None]
  - RED BLOOD CELL COUNT DECREASED [None]
